FAERS Safety Report 7603909-0 (Version None)
Quarter: 2011Q3

REPORT INFORMATION
  Report Type: 
  Country: None (occurrence: None)
  Receive Date: 20110712
  Receipt Date: 20110705
  Transmission Date: 20111222
  Serious: Yes (Death, Hospitalization)
  Sender: FDA-Public Use
  Company Number: BR-ROCHE-689073

PATIENT
  Sex: Female
  Weight: 50 kg

DRUGS (6)
  1. PEGINTERFERON ALFA-2A [Suspect]
     Route: 058
  2. FUROSEMIDE [Concomitant]
     Dates: start: 20091001, end: 20100301
  3. RIBAVIRIN [Suspect]
     Dosage: LAST DOSE PRIOR TO SAE: 5 FEB 2010; DOSE FORM REPORTED AS 600
     Route: 048
     Dates: start: 20090831, end: 20100117
  4. PEGINTERFERON ALFA-2A [Suspect]
     Dosage: LAST DOSE PRIOR TO EVENT ON 1 FEB 2010; DOSAGE FORM REPORTED AS 0.5 ML
     Route: 058
     Dates: start: 20090831, end: 20100117
  5. SPIRONOLACTONE [Concomitant]
     Dates: start: 20091001, end: 20100301
  6. RIBAVIRIN [Suspect]
     Dosage: LAST DOSE PRIOR TO SAE: 5 FEB 2010;
     Route: 048
     Dates: end: 20100207

REACTIONS (1)
  - UPPER GASTROINTESTINAL HAEMORRHAGE [None]
